FAERS Safety Report 8565605-5 (Version None)
Quarter: 2012Q3

REPORT INFORMATION
  Report Type: 
  Country: None (occurrence: None)
  Receive Date: 20120803
  Receipt Date: 20120723
  Transmission Date: 20120928
  Serious: No
  Sender: FDA-Public Use
  Company Number: US-JNJFOC-20120603313

PATIENT
  Age: 45 Year
  Sex: Female

DRUGS (7)
  1. INVEGA SUSTENNA [Suspect]
     Dosage: DAY 63 DOSE GIVEN ON AN UNSPECIFIED DATE
     Route: 030
  2. INVEGA SUSTENNA [Suspect]
     Dosage: DAY 1 DOSE GIVEN AT UNSPECIFIED DATE
     Route: 030
  3. RISPERDAL [Suspect]
     Indication: SCHIZOPHRENIA
     Dosage: EVERY BED TIME
     Route: 048
  4. PROZAC [Concomitant]
     Indication: DEPRESSION
     Route: 065
  5. INVEGA SUSTENNA [Suspect]
     Dosage: DAY 35 DOSE GIVEN AT UNSPECIFIED DATE
     Route: 030
  6. INVEGA SUSTENNA [Suspect]
     Dosage: DAY 91 DOSE GIVEN ON AN UNSPECIFIED DATE
     Route: 030
  7. INVEGA SUSTENNA [Suspect]
     Indication: SCHIZOPHRENIA
     Dosage: DAY 8 DOSE GIVEN AT UNSPECIFIED DATE
     Route: 030

REACTIONS (4)
  - PRODUCT QUALITY ISSUE [None]
  - DELUSION [None]
  - CONDITION AGGRAVATED [None]
  - HALLUCINATION [None]
